FAERS Safety Report 8343526-0 (Version None)
Quarter: 2012Q2

REPORT INFORMATION
  Report Type: 
  Country: None (occurrence: None)
  Receive Date: 20120508
  Receipt Date: 20120501
  Transmission Date: 20120825
  Serious: Yes (Other)
  Sender: FDA-Public Use
  Company Number: US-GENZYME-MOZO-1000611

PATIENT
  Sex: Female
  Weight: 50.34 kg

DRUGS (36)
  1. AZACITIDINE [Concomitant]
     Dosage: 117 MG, QD
     Route: 058
     Dates: start: 20111205, end: 20111209
  2. SODIUM CHLORIDE [Concomitant]
     Indication: PLATELET TRANSFUSION
     Dosage: 250 ML, ONCE
     Route: 042
     Dates: start: 20111031, end: 20111031
  3. MIDAZOLAM [Concomitant]
     Indication: BIOPSY BONE MARROW
     Dosage: 0.5 MG, ONCE
     Route: 040
     Dates: start: 20111104, end: 20111104
  4. RASBURICASE [Concomitant]
     Indication: HYPERURICAEMIA
     Dosage: 6 MG, ONCE
     Route: 042
     Dates: start: 20111205, end: 20111205
  5. MOZOBIL [Suspect]
     Dosage: 23000 MCG, QD
     Route: 058
     Dates: start: 20111205, end: 20111209
  6. SODIUM CHLORIDE [Concomitant]
     Dosage: 30 ML, QID
     Route: 050
     Dates: start: 20111205, end: 20111209
  7. METOPROLOL SUCCINATE [Concomitant]
     Indication: CARDIOVASCULAR DISORDER
     Dosage: 50 MG, QD
     Route: 048
     Dates: start: 20111031, end: 20111104
  8. HYDROMORPHONE HCL [Concomitant]
     Dosage: 0.5 MG, ONCE
     Route: 040
     Dates: start: 20111104, end: 20111104
  9. ALLOPURINOL [Concomitant]
     Indication: PROPHYLAXIS
     Dosage: 300 MG, QD
     Route: 048
     Dates: start: 20111103, end: 20111104
  10. MENTHOL [Concomitant]
     Indication: OROPHARYNGEAL PAIN
     Dosage: UNK
     Route: 050
     Dates: start: 20111205, end: 20111205
  11. LOPERAMIDE [Concomitant]
     Indication: DIARRHOEA
     Dosage: 2 MG, PRN
     Route: 048
     Dates: start: 20111207, end: 20111207
  12. PREDNISONE TAB [Concomitant]
     Indication: PREMEDICATION
     Dosage: 20 MG, QD
     Route: 048
     Dates: start: 20111031, end: 20111104
  13. POTASSIUM CHLORIDE [Concomitant]
     Indication: HYPOKALAEMIA
     Dosage: 40 MEQ, PRN
     Route: 048
     Dates: start: 20111031, end: 20111031
  14. MIDAZOLAM [Concomitant]
     Dosage: 0.5 MG, ONCE
     Route: 040
     Dates: start: 20111104, end: 20111104
  15. PREDNISONE TAB [Concomitant]
     Dosage: 5 MG, QD
     Route: 048
     Dates: start: 20111205, end: 20111209
  16. VALACICLOVIR [Concomitant]
     Indication: PROPHYLAXIS
     Dosage: 500 MG, QD
     Route: 048
     Dates: start: 20111031, end: 20111104
  17. POTASSIUM CHLORIDE [Concomitant]
     Dosage: 40 MEQ, ONCE
     Route: 042
     Dates: start: 20111103, end: 20111103
  18. HYDROMORPHONE HCL [Concomitant]
     Indication: BIOPSY BONE MARROW
     Dosage: 0.5 MG, ONCE
     Route: 040
     Dates: start: 20111104, end: 20111104
  19. NEUPOGEN [Suspect]
     Indication: MYELODYSPLASTIC SYNDROME
     Dosage: 268 MCG, QD
     Route: 058
     Dates: start: 20111031, end: 20111104
  20. AZACITIDINE [Concomitant]
     Indication: MYELODYSPLASTIC SYNDROME
     Dosage: 119 MG, QD
     Route: 058
     Dates: start: 20111031, end: 20111104
  21. SODIUM CHLORIDE [Concomitant]
     Indication: DENTAL DISORDER PROPHYLAXIS
     Dosage: 30 ML, QID
     Route: 050
     Dates: start: 20111031, end: 20111104
  22. SODIUM CHLORIDE [Concomitant]
     Indication: INTRAVENOUS CATHETER MANAGEMENT
     Dosage: 10 ML, TID
     Route: 040
     Dates: start: 20111204, end: 20111209
  23. METOPROLOL SUCCINATE [Concomitant]
     Dosage: 50 MG, QD
     Route: 048
     Dates: start: 20111205, end: 20111209
  24. FAMOTIDINE [Concomitant]
     Indication: ANTACID THERAPY
     Dosage: 20 MG, BID
     Route: 048
     Dates: start: 20111031, end: 20111104
  25. METRONIDAZOLE [Concomitant]
     Indication: CLOSTRIDIAL INFECTION
     Dosage: 500 MG, TID
     Route: 048
     Dates: start: 20111031, end: 20111103
  26. HYDROCODONE W [Concomitant]
     Indication: PAIN
     Dosage: UNK MG, PRN
     Route: 048
     Dates: start: 20111030, end: 20111103
  27. ACETAMINOPHEN [Concomitant]
     Dosage: 650 MG, PRN
     Route: 048
     Dates: start: 20111204, end: 20111209
  28. MAGNESIUM HYDROXIDE W [Concomitant]
     Dosage: 30 ML, PRN
     Route: 048
     Dates: start: 20111207, end: 20111207
  29. MOZOBIL [Suspect]
     Indication: MYELODYSPLASTIC SYNDROME
     Dosage: 24000 MCG, QD
     Route: 058
     Dates: start: 20111031, end: 20111104
  30. NEUPOGEN [Suspect]
     Dosage: 258 MCG, QD
     Route: 058
     Dates: start: 20111205, end: 20111209
  31. FAMOTIDINE [Concomitant]
     Dosage: 20 MG, BID
     Route: 048
     Dates: start: 20111204, end: 20111209
  32. SODIUM CHLORIDE [Concomitant]
     Indication: FLUID REPLACEMENT
     Dosage: 1000 ML, ONCE
     Route: 042
     Dates: start: 20111102, end: 20111102
  33. HYDROMORPHONE HCL [Concomitant]
     Dosage: 0.5 MG, ONCE
     Route: 040
     Dates: start: 20111104, end: 20111104
  34. MIDAZOLAM [Concomitant]
     Dosage: 0.5 MG, ONCE
     Route: 040
     Dates: start: 20111104, end: 20111104
  35. ACETAMINOPHEN [Concomitant]
     Indication: PAIN
     Dosage: 650 MG, ONCE
     Route: 048
     Dates: start: 20111205, end: 20111205
  36. MAGNESIUM HYDROXIDE W [Concomitant]
     Indication: DYSPEPSIA
     Dosage: 15 ML, ONCE
     Route: 048
     Dates: start: 20111206, end: 20111206

REACTIONS (6)
  - THROMBOCYTOSIS [None]
  - ANXIETY [None]
  - SPLENOMEGALY [None]
  - DECREASED APPETITE [None]
  - INSOMNIA [None]
  - NAUSEA [None]
